FAERS Safety Report 5495392-9 (Version None)
Quarter: 2007Q4

REPORT INFORMATION
  Report Type: 
  Country: None (occurrence: None)
  Receive Date: 20071024
  Receipt Date: 20071017
  Transmission Date: 20080405
  Serious: Yes (Other)
  Sender: FDA-Public Use
  Company Number: KR-PFIZER INC-2007087663

PATIENT
  Sex: Male

DRUGS (1)
  1. VIAGRA [Suspect]
     Route: 048

REACTIONS (7)
  - DIZZINESS [None]
  - EXTRAOCULAR MUSCLE DISORDER [None]
  - HAEMATURIA [None]
  - INTENTIONAL DRUG MISUSE [None]
  - NAUSEA [None]
  - VISUAL ACUITY REDUCED [None]
  - VISUAL DISTURBANCE [None]
